FAERS Safety Report 15774597 (Version 5)
Quarter: 2019Q2

REPORT INFORMATION
  Report Type: Report from Study
  Country: US (occurrence: US)
  Receive Date: 20181230
  Receipt Date: 20190607
  Transmission Date: 20190711
  Serious: No
  Sender: FDA-Public Use
  Company Number: PHEH2018US054767

PATIENT
  Sex: Male

DRUGS (1)
  1. ILARIS [Suspect]
     Active Substance: CANAKINUMAB
     Indication: STILL^S DISEASE
     Dosage: 300 MG, Q4W
     Route: 058

REACTIONS (5)
  - Cyst [Unknown]
  - Ill-defined disorder [Unknown]
  - Herpes zoster [Recovering/Resolving]
  - Rash [Recovering/Resolving]
  - Pain [Unknown]
